FAERS Safety Report 5091162-4 (Version None)
Quarter: 2006Q3

REPORT INFORMATION
  Report Type: 
  Country: None (occurrence: None)
  Receive Date: 20060824
  Receipt Date: 20060814
  Transmission Date: 20061208
  Serious: Yes (Other)
  Sender: FDA-Public Use
  Company Number: 2006099521

PATIENT
  Sex: Female
  Weight: 72.5755 kg

DRUGS (2)
  1. DEPO-PROVERA [Suspect]
     Indication: CONTRACEPTION
     Dosage: INTRAMUSCULAR
     Route: 030
     Dates: start: 19990101, end: 19990101
  2. SKELAXIN [Suspect]
     Indication: BACK PAIN

REACTIONS (6)
  - ARTHRALGIA [None]
  - BACK PAIN [None]
  - DEPRESSION [None]
  - MUSCLE SPASMS [None]
  - SMEAR CERVIX ABNORMAL [None]
  - WEIGHT INCREASED [None]
